FAERS Safety Report 8066758-8 (Version None)
Quarter: 2012Q1

REPORT INFORMATION
  Report Type: 
  Country: None (occurrence: None)
  Receive Date: 20120117
  Receipt Date: 20120113
  Transmission Date: 20120608
  Serious: Yes (Other)
  Sender: FDA-Public Use
  Company Number: 2011AP002586

PATIENT
  Age: 40 Year
  Sex: Female

DRUGS (3)
  1. CITALOPRAM HYDROBROMIDE [Concomitant]
  2. CITALOPRAM HYDROBROMIDE [Suspect]
     Indication: DEPRESSION
     Dosage: 20 MG;;PO;QD, 40 MG;QD;PO
     Route: 048
     Dates: start: 20110909, end: 20111017
  3. CITALOPRAM HYDROBROMIDE [Suspect]
     Indication: DEPRESSION
     Dosage: 20 MG;;PO;QD, 40 MG;QD;PO
     Route: 048
     Dates: start: 20110615, end: 20110908

REACTIONS (3)
  - IMPAIRED DRIVING ABILITY [None]
  - GRAND MAL CONVULSION [None]
  - GLOSSODYNIA [None]
